FAERS Safety Report 9842628 (Version 2)
Quarter: 2014Q1

REPORT INFORMATION
  Report Type: Report from Study
  Country: DE (occurrence: DE)
  Receive Date: 20140124
  Receipt Date: 20140224
  Transmission Date: 20141002
  Serious: Yes (Other)
  Sender: FDA-Public Use
  Company Number: DE-BRISTOL-MYERS SQUIBB COMPANY-20052593

PATIENT
  Age: 54 Year
  Sex: Female

DRUGS (3)
  1. ABATACEPT SUBQ INJECTION 125MG/ML [Suspect]
     Indication: RHEUMATOID ARTHRITIS
     Dosage: INTERRUPTED?10DEC2013
     Route: 058
     Dates: start: 20130722
  2. METHOTREXATE [Suspect]
     Route: 058
  3. FOLSAURE [Concomitant]
     Route: 048

REACTIONS (1)
  - Hypertensive crisis [Recovering/Resolving]
